FAERS Safety Report 5708902-0 (Version None)
Quarter: 2008Q2

REPORT INFORMATION
  Report Type: 
  Country: None (occurrence: None)
  Receive Date: 20080416
  Receipt Date: 20080402
  Transmission Date: 20081010
  Serious: Yes (Hospitalization, Disabling)
  Sender: FDA-Public Use
  Company Number: 2008S1005951

PATIENT
  Age: 20 Year
  Sex: Male

DRUGS (2)
  1. PHENYTOIN SODIUM [Suspect]
     Indication: CONVULSION
     Dosage: ORAL
     Route: 048
     Dates: start: 20000929
  2. FOSPHENYTOIN [Suspect]
     Indication: CONVULSION
     Dosage: ORAL
     Dates: start: 20000929

REACTIONS (6)
  - BLINDNESS [None]
  - CONVULSION [None]
  - COUGH [None]
  - INJURY [None]
  - PYREXIA [None]
  - STEVENS-JOHNSON SYNDROME [None]
